FAERS Safety Report 20417414 (Version 1)
Quarter: 2022Q1

REPORT INFORMATION
  Report Type: Spontaneous
  Country: US (occurrence: None)
  Receive Date: 20220202
  Receipt Date: 20220202
  Transmission Date: 20220423
  Serious: Yes (Hospitalization)
  Sender: FDA-Public Use
  Company Number: None

PATIENT
  Age: 52 Year
  Sex: Female

DRUGS (2)
  1. BAMLANIVIMAB [Suspect]
     Active Substance: BAMLANIVIMAB
     Indication: COVID-19
     Dosage: FREQUENCY : ONCE;?
     Dates: start: 20210503, end: 20210503
  2. ETESEVIMAB [Suspect]
     Active Substance: ETESEVIMAB
     Dosage: FREQUENCY : ONCE;?
     Dates: start: 20210503, end: 20210503

REACTIONS (5)
  - Oxygen saturation decreased [None]
  - Infusion related reaction [None]
  - Dyspnoea [None]
  - Hypoxia [None]
  - COVID-19 pneumonia [None]

NARRATIVE: CASE EVENT DATE: 20210503
